FAERS Safety Report 6291442-0 (Version None)
Quarter: 2009Q3

REPORT INFORMATION
  Report Type: 
  Country: None (occurrence: None)
  Receive Date: 20090729
  Receipt Date: 20090729
  Transmission Date: 20100115
  Serious: Yes (Other)
  Sender: FDA-Public Use
  Company Number: None

PATIENT
  Age: 49 Year
  Sex: Female
  Weight: 70.3075 kg

DRUGS (2)
  1. VYTORIN [Suspect]
     Indication: HYPERCHOLESTEROLAEMIA
     Dosage: ONE 10/20 MG TABLET DAILY PO
     Route: 048
     Dates: start: 20090508, end: 20090710
  2. VYTORIN [Suspect]
     Indication: HYPERTRIGLYCERIDAEMIA
     Dosage: ONE 10/20 MG TABLET DAILY PO
     Route: 048
     Dates: start: 20090508, end: 20090710

REACTIONS (3)
  - AMNESIA [None]
  - IRRITABILITY [None]
  - MYALGIA [None]
